FAERS Safety Report 12292664 (Version 1)
Quarter: 2016Q2

REPORT INFORMATION
  Report Type: Report from Study
  Country: US (occurrence: US)
  Receive Date: 20160421
  Receipt Date: 20160421
  Transmission Date: 20160815
  Serious: No
  Sender: FDA-Public Use
  Company Number: US-AMGEN-USASL2016022333

PATIENT
  Age: 65 Year
  Sex: Male

DRUGS (1)
  1. REPATHA [Suspect]
     Active Substance: EVOLOCUMAB
     Indication: HYPERCHOLESTEROLAEMIA
     Dosage: 140 MG, UNK
     Route: 065

REACTIONS (4)
  - Diarrhoea [Recovered/Resolved]
  - Myalgia [Unknown]
  - Muscle spasms [Recovered/Resolved]
  - Back pain [Recovered/Resolved]

NARRATIVE: CASE EVENT DATE: 201602
